FAERS Safety Report 24197221 (Version 2)
Quarter: 2025Q3

REPORT INFORMATION
  Report Type: Spontaneous
  Country: US (occurrence: US)
  Receive Date: 20240810
  Receipt Date: 20250815
  Transmission Date: 20251021
  Serious: No
  Sender: SANOFI AVENTIS
  Company Number: US-SA-SAC20240808000699

PATIENT
  Age: 74 Year
  Sex: Female
  Weight: 68.8 kg

DRUGS (24)
  1. KEVZARA [Suspect]
     Active Substance: SARILUMAB
     Indication: Rheumatoid arthritis
     Dosage: 200 MG, QOW
     Route: 058
     Dates: start: 20220301, end: 202407
  2. SIMVASTATIN [Concomitant]
     Active Substance: SIMVASTATIN
  3. SENNAX [Concomitant]
  4. SENOKOT [Concomitant]
     Active Substance: SENNOSIDES
  5. PANTOPRAZOLE SODIUM [Concomitant]
     Active Substance: PANTOPRAZOLE SODIUM
  6. MACROLID [Concomitant]
  7. METHOTREXATE [Concomitant]
     Active Substance: METHOTREXATE
  8. FERROUS SULFATE [Concomitant]
     Active Substance: FERROUS SULFATE
  9. ALUMINUM HYDROXIDE\MAGNESIUM CARBONATE [Concomitant]
     Active Substance: ALUMINUM HYDROXIDE\MAGNESIUM CARBONATE
  10. LEXAPRO [Concomitant]
     Active Substance: ESCITALOPRAM OXALATE
  11. BUPROPION [Concomitant]
     Active Substance: BUPROPION
  12. MELOXICAM [Concomitant]
     Active Substance: MELOXICAM
  13. ESCITALOPRAM OXALATE [Concomitant]
     Active Substance: ESCITALOPRAM OXALATE
  14. JANVIA [Concomitant]
  15. CLONAZEPAM [Concomitant]
     Active Substance: CLONAZEPAM
  16. LOSARTAN POTASSIUM [Concomitant]
     Active Substance: LOSARTAN POTASSIUM
  17. TRAMADOL HCL [Concomitant]
     Active Substance: TRAMADOL HYDROCHLORIDE
  18. JANVIA [Concomitant]
  19. CLONAZEPAM [Concomitant]
     Active Substance: CLONAZEPAM
  20. OMEGA 3 FISH OIL + VITAMIN D [Concomitant]
  21. LEXAPRO [Concomitant]
     Active Substance: ESCITALOPRAM OXALATE
  22. GARLIC [Concomitant]
     Active Substance: GARLIC
  23. VITAMINS [Concomitant]
     Active Substance: VITAMINS
  24. ACETAMINOPHEN [Concomitant]
     Active Substance: ACETAMINOPHEN

REACTIONS (2)
  - Swelling [Unknown]
  - Pain [Unknown]

NARRATIVE: CASE EVENT DATE: 20240101
